FAERS Safety Report 8488389-8 (Version None)
Quarter: 2012Q2

REPORT INFORMATION
  Report Type: 
  Country: None (occurrence: None)
  Receive Date: 20120626
  Receipt Date: 20120615
  Transmission Date: 20120825
  Serious: Yes (Hospitalization, Other)
  Sender: FDA-Public Use
  Company Number: AUR-APL-2012-02626

PATIENT
  Age: 67 Year
  Sex: Male
  Weight: 101 kg

DRUGS (5)
  1. ASPIRIN [Concomitant]
  2. CLOPIDOGREL (CLOPIDOGREL) [Concomitant]
  3. PREDNISOLONE [Concomitant]
  4. SIMVASTATIN [Concomitant]
  5. RAMIPRIL [Suspect]
     Indication: MYOCARDIAL INFARCTION
     Dosage: 10 MG (10 MG, 1 IN 1 D),ORAL
     Route: 048
     Dates: start: 20110530, end: 20120416

REACTIONS (6)
  - JAW DISORDER [None]
  - SPEECH DISORDER [None]
  - LIP SWELLING [None]
  - SWELLING FACE [None]
  - SWOLLEN TONGUE [None]
  - DRUG HYPERSENSITIVITY [None]
